FAERS Safety Report 6674424-6 (Version None)
Quarter: 2010Q2

REPORT INFORMATION
  Report Type: 
  Country: None (occurrence: None)
  Receive Date: 20100409
  Receipt Date: 20100329
  Transmission Date: 20101027
  Serious: Yes (Other)
  Sender: FDA-Public Use
  Company Number: PHHY2010TH20064

PATIENT
  Age: 56 Year
  Sex: Male
  Weight: 69.1 kg

DRUGS (1)
  1. ZOMETA [Suspect]
     Dosage: 4 MG
     Route: 042
     Dates: start: 20090624, end: 20100105

REACTIONS (1)
  - OSTEONECROSIS [None]
